FAERS Safety Report 7654499-8 (Version None)
Quarter: 2011Q3

REPORT INFORMATION
  Report Type: 
  Country: None (occurrence: None)
  Receive Date: 20110803
  Receipt Date: 20110729
  Transmission Date: 20111222
  Serious: Yes (Hospitalization)
  Sender: FDA-Public Use
  Company Number: US-ABBOTT-11P-163-0842858-00

PATIENT
  Age: 51 Year
  Sex: Female

DRUGS (16)
  1. HYDROCODONE [Concomitant]
     Indication: ARTHRALGIA
     Dosage: 10-500MG EVERY 6 HOURS
  2. REGLAN [Suspect]
     Indication: PRODUCT USED FOR UNKNOWN INDICATION
  3. PREDNISONE [Concomitant]
     Dosage: WEANING DOWN ONCE HUMIRA STARTED
  4. METOPROLOL TARTRATE [Concomitant]
     Indication: HYPERTENSION
  5. OMEPRAZOLE [Concomitant]
     Indication: GASTROOESOPHAGEAL REFLUX DISEASE
  6. PREDNISONE [Concomitant]
     Indication: PRODUCT USED FOR UNKNOWN INDICATION
     Dosage: WEANING DOWN ONCE HUMIRA STARTED
  7. MULTI-VITAMIN [Concomitant]
     Indication: PRODUCT USED FOR UNKNOWN INDICATION
     Dosage: DAILY
  8. PROZAC [Concomitant]
     Indication: DEPRESSION
  9. FISH OIL [Concomitant]
     Indication: PRODUCT USED FOR UNKNOWN INDICATION
     Dosage: DAILY
  10. HUMIRA [Suspect]
     Indication: CROHN'S DISEASE
     Dates: start: 20110501
  11. ASPIRIN [Concomitant]
     Indication: PROPHYLAXIS
  12. FUROSEMIDE [Concomitant]
     Indication: OEDEMA PERIPHERAL
  13. XANAX [Concomitant]
     Indication: ANXIETY
     Dosage: 3 TIMES DAILY AS NEEDED
  14. CALCIUM ACETATE [Concomitant]
     Indication: PRODUCT USED FOR UNKNOWN INDICATION
     Dosage: DAILY
  15. VIT D [Concomitant]
     Indication: PRODUCT USED FOR UNKNOWN INDICATION
     Dosage: DAILY
  16. PENTASA [Concomitant]
     Indication: PRODUCT USED FOR UNKNOWN INDICATION

REACTIONS (10)
  - VOMITING [None]
  - DIARRHOEA [None]
  - FEELING OF BODY TEMPERATURE CHANGE [None]
  - OEDEMA PERIPHERAL [None]
  - SKIN LESION [None]
  - SUICIDE ATTEMPT [None]
  - DEPRESSION [None]
  - BLISTER [None]
  - NAUSEA [None]
  - ASTHENIA [None]
